FAERS Safety Report 10066252 (Version 3)
Quarter: 2016Q1

REPORT INFORMATION
  Report Type: Report from Study
  Country: US (occurrence: US)
  Receive Date: 20140408
  Receipt Date: 20160302
  Transmission Date: 20160525
  Serious: Yes (Hospitalization, Other)
  Sender: FDA-Public Use
  Company Number: US-ASTELLAS-2014US003580

PATIENT
  Age: 72 Year
  Sex: Female

DRUGS (11)
  1. ERLOTINIB [Suspect]
     Active Substance: ERLOTINIB
     Route: 048
  2. ERLOTINIB [Suspect]
     Active Substance: ERLOTINIB
     Route: 048
     Dates: start: 200610
  3. ERLOTINIB [Suspect]
     Active Substance: ERLOTINIB
     Indication: LUNG NEOPLASM MALIGNANT
     Route: 048
     Dates: start: 200508, end: 20090212
  4. VENLAFAXINE [Concomitant]
     Active Substance: VENLAFAXINE HYDROCHLORIDE
     Indication: DEPRESSION
     Dosage: UNK, UNKNOWN FREQ.
     Route: 065
  5. ERLOTINIB [Suspect]
     Active Substance: ERLOTINIB
     Route: 048
     Dates: start: 2014
  6. ALLOPURINOL. [Concomitant]
     Active Substance: ALLOPURINOL
     Indication: GOUT
     Dosage: UNK, UNKNOWN FREQ.
     Route: 065
  7. PROPRANOLOL                        /00030002/ [Concomitant]
     Indication: TREMOR
     Dosage: UNK, UNKNOWN FREQ.
     Route: 065
  8. FUROSEMIDE. [Concomitant]
     Active Substance: FUROSEMIDE
     Indication: PRODUCT USED FOR UNKNOWN INDICATION
     Dosage: UNK, UNKNOWN FREQ.
     Route: 065
  9. BAYER ASPIRIN [Concomitant]
     Active Substance: ASPIRIN
     Indication: PRODUCT USED FOR UNKNOWN INDICATION
     Dosage: UNK, UNKNOWN FREQ.
     Route: 065
  10. ERLOTINIB [Suspect]
     Active Substance: ERLOTINIB
     Route: 048
     Dates: start: 201307
  11. LEVOTHYROXINE                      /00068002/ [Concomitant]
     Indication: THYROID DISORDER
     Dosage: UNK, UNKNOWN FREQ.
     Route: 065

REACTIONS (16)
  - Malignant neoplasm progression [Not Recovered/Not Resolved]
  - Hyperkeratosis [Recovered/Resolved]
  - Hypersomnia [Not Recovered/Not Resolved]
  - Diarrhoea [Recovered/Resolved]
  - Haemolysis [Recovered/Resolved]
  - Drug ineffective [Unknown]
  - Recurrent cancer [Unknown]
  - Onychomycosis [Recovered/Resolved]
  - Pulmonary embolism [Unknown]
  - Myocardial infarction [Recovered/Resolved]
  - Headache [Unknown]
  - Malignant neoplasm progression [Unknown]
  - Hair growth abnormal [Recovered/Resolved]
  - Haematemesis [Recovered/Resolved]
  - Diarrhoea [Unknown]
  - Growth of eyelashes [Recovered/Resolved]

NARRATIVE: CASE EVENT DATE: 200610
